FAERS Safety Report 4646079-3 (Version None)
Quarter: 2005Q2

REPORT INFORMATION
  Report Type: 
  Country: None (occurrence: None)
  Receive Date: 20050427
  Receipt Date: 20040419
  Transmission Date: 20051028
  Serious: No
  Sender: FDA-Public Use
  Company Number: US-GLAXOSMITHKLINE-A0507599A

PATIENT
  Sex: Female

DRUGS (2)
  1. ZOFRAN [Suspect]
     Route: 042
  2. METHADONE [Concomitant]

REACTIONS (3)
  - CHILLS [None]
  - MALAISE [None]
  - PARAESTHESIA [None]
